FAERS Safety Report 9421058 (Version 5)
Quarter: 2014Q3

REPORT INFORMATION
  Report Type: Spontaneous
  Country: US (occurrence: US)
  Receive Date: 20130725
  Receipt Date: 20140925
  Transmission Date: 20150326
  Serious: Yes (Death, Life-Threatening, Hospitalization, Other)
  Sender: FDA-Public Use
  Company Number: US-MERCK-1307USA013639

PATIENT
  Sex: Male
  Weight: 99.77 kg

DRUGS (2)
  1. JANUVIA [Suspect]
     Active Substance: SITAGLIPTIN PHOSPHATE
     Indication: TYPE 2 DIABETES MELLITUS
     Dosage: 100 MG, QD
     Route: 048
     Dates: start: 20100827, end: 20120331
  2. VICTOZA [Suspect]
     Active Substance: LIRAGLUTIDE
     Indication: TYPE 2 DIABETES MELLITUS
     Dosage: 1.8 MG, QD
     Dates: start: 20100414, end: 20100827

REACTIONS (34)
  - Dyslipidaemia [Unknown]
  - Pollakiuria [Unknown]
  - Dysphagia [Unknown]
  - Insomnia [Unknown]
  - Memory impairment [Unknown]
  - Death [Fatal]
  - Bronchitis viral [Unknown]
  - Nodule [Unknown]
  - Intervertebral disc degeneration [Unknown]
  - Hepatic cancer [Unknown]
  - Osteoarthritis [Unknown]
  - Hiatus hernia [Unknown]
  - Diabetes mellitus inadequate control [Unknown]
  - Pancreatic carcinoma [Unknown]
  - Hernia repair [Unknown]
  - Flatulence [Unknown]
  - Dizziness [Unknown]
  - Haematochezia [Unknown]
  - Umbilical hernia [Unknown]
  - Gastrooesophageal reflux disease [Unknown]
  - Arthritis [Unknown]
  - Depression [Unknown]
  - Adverse event [Unknown]
  - Adverse drug reaction [Unknown]
  - Pancreatic carcinoma metastatic [Unknown]
  - Apolipoprotein E abnormal [Unknown]
  - Hepatic lesion [Unknown]
  - Muscle spasms [Unknown]
  - Dyspepsia [Unknown]
  - Haemorrhoids [Unknown]
  - Increased appetite [Unknown]
  - Polyuria [Unknown]
  - Constipation [Unknown]
  - Musculoskeletal pain [Unknown]

NARRATIVE: CASE EVENT DATE: 20111129
